FAERS Safety Report 8307375-1 (Version None)
Quarter: 2012Q2

REPORT INFORMATION
  Report Type: 
  Country: None (occurrence: None)
  Receive Date: 20120420
  Receipt Date: 20120406
  Transmission Date: 20120825
  Serious: Yes (Hospitalization)
  Sender: FDA-Public Use
  Company Number: 2012-001436

PATIENT
  Age: 58 Year
  Sex: Female

DRUGS (18)
  1. ESCITALOPRAM [Concomitant]
  2. VALSARTAN [Concomitant]
  3. XANAX [Concomitant]
  4. FOLIC ACID [Concomitant]
  5. ACETAMINOPHEN [Concomitant]
  6. SULFARLEM (ANETHOLE TRITHIONE) [Concomitant]
  7. PREDNISONE TAB [Concomitant]
  8. METOJECT (METHOTREXATE SODIUM) [Concomitant]
  9. LYRICA [Concomitant]
  10. NEXIUM [Concomitant]
  11. AMITRIPTYLINE HCL [Concomitant]
  12. ZOLPIDEM TARTRATE [Concomitant]
  13. ACTONEL [Suspect]
     Dosage: UNKNOWN, ORAL
     Route: 048
     Dates: start: 20100101, end: 20120315
  14. ACUPAN [Concomitant]
  15. ENBREL [Suspect]
     Indication: RHEUMATOID ARTHRITIS
     Dosage: 50 MG ONCE WEEKLY, SUBCUTANEOUS
     Route: 058
     Dates: start: 20111018, end: 20120303
  16. RITUXAN [Concomitant]
  17. FLODIL /00646501/ (FELODIPINE) [Concomitant]
  18. VOLTARENE /00372302/ (DICLOFENAC SODIUM) [Concomitant]

REACTIONS (8)
  - NEUTROPENIA [None]
  - SUICIDE ATTEMPT [None]
  - AGRANULOCYTOSIS [None]
  - ASTHENIA [None]
  - OEDEMA PERIPHERAL [None]
  - DEPRESSION [None]
  - CHILLS [None]
  - HEADACHE [None]
